FAERS Safety Report 7627095-6 (Version None)
Quarter: 2011Q3

REPORT INFORMATION
  Report Type: 
  Country: None (occurrence: None)
  Receive Date: 20110714
  Receipt Date: 20110704
  Transmission Date: 20111222
  Serious: Yes (Other)
  Sender: FDA-Public Use
  Company Number: 1000022044

PATIENT
  Age: 58 Year
  Sex: Male

DRUGS (5)
  1. NEBIVOLOL HCL [Suspect]
     Indication: HYPERTENSION
     Dosage: 5 MG (5 MG,1 IN 1 D), ORAL
     Route: 048
     Dates: start: 20090101, end: 20110524
  2. PLAVIX (CLOPIDOGREL BISULFATE) (CLOPIDOGREL BISULFATE) [Concomitant]
  3. ALDACTAZINE (ALTIZIDE, SPIRONOLACTONE) (ALTIZIDE, SPITONOLACTONE) [Concomitant]
  4. EXFORGE (AMLODIPINE BESILATE, VALSARTAN) (AMLODIPINE BESILATE, VALSART [Concomitant]
  5. CRESTOR [Concomitant]

REACTIONS (1)
  - TOXIC SKIN ERUPTION [None]
